FAERS Safety Report 7071845-7 (Version None)
Quarter: 2010Q4

REPORT INFORMATION
  Report Type: 
  Country: None (occurrence: None)
  Receive Date: 20101029
  Receipt Date: 20101019
  Transmission Date: 20110411
  Serious: Yes (Other)
  Sender: FDA-Public Use
  Company Number: PHFR2010GB04894

PATIENT

DRUGS (1)
  1. ACLASTA [Suspect]
     Dosage: UNK
     Dates: start: 20100701

REACTIONS (3)
  - CONSTIPATION [None]
  - IRRITABLE BOWEL SYNDROME [None]
  - PAIN [None]
